FAERS Safety Report 20599674 (Version 1)
Quarter: 2022Q1

REPORT INFORMATION
  Report Type: Spontaneous
  Country: US (occurrence: US)
  Receive Date: 20220316
  Receipt Date: 20220316
  Transmission Date: 20220423
  Serious: No
  Sender: FDA-Public Use
  Company Number: None

PATIENT
  Age: 57 Year
  Sex: Female

DRUGS (16)
  1. METRONIDAZOLE [Suspect]
     Active Substance: METRONIDAZOLE
     Indication: Candida infection
     Dosage: UNK
     Route: 065
  2. METRONIDAZOLE [Suspect]
     Active Substance: METRONIDAZOLE
     Indication: Klebsiella bacteraemia
  3. METRONIDAZOLE [Suspect]
     Active Substance: METRONIDAZOLE
     Indication: Weissella infection
  4. METRONIDAZOLE [Suspect]
     Active Substance: METRONIDAZOLE
     Indication: Enterococcal infection
  5. DAPTOMYCIN [Concomitant]
     Active Substance: DAPTOMYCIN
     Indication: Candida infection
     Dosage: UNK
     Route: 065
  6. DAPTOMYCIN [Concomitant]
     Active Substance: DAPTOMYCIN
     Indication: Klebsiella bacteraemia
  7. DAPTOMYCIN [Concomitant]
     Active Substance: DAPTOMYCIN
     Indication: Weissella infection
  8. DAPTOMYCIN [Concomitant]
     Active Substance: DAPTOMYCIN
     Indication: Enterococcal infection
  9. AZTREONAM [Concomitant]
     Active Substance: AZTREONAM
     Indication: Candida infection
     Dosage: UNK
     Route: 065
  10. AZTREONAM [Concomitant]
     Active Substance: AZTREONAM
     Indication: Klebsiella bacteraemia
  11. AZTREONAM [Concomitant]
     Active Substance: AZTREONAM
     Indication: Weissella infection
  12. AZTREONAM [Concomitant]
     Active Substance: AZTREONAM
     Indication: Enterococcal infection
  13. LINEZOLID [Concomitant]
     Active Substance: LINEZOLID
     Indication: Candida infection
     Dosage: UNK
     Route: 065
  14. LINEZOLID [Concomitant]
     Active Substance: LINEZOLID
     Indication: Klebsiella bacteraemia
  15. LINEZOLID [Concomitant]
     Active Substance: LINEZOLID
     Indication: Weissella infection
  16. LINEZOLID [Concomitant]
     Active Substance: LINEZOLID
     Indication: Enterococcal infection

REACTIONS (1)
  - Off label use [Unknown]
